FAERS Safety Report 15541932 (Version 1)
Quarter: 2018Q4

REPORT INFORMATION
  Report Type: Spontaneous
  Country: US (occurrence: US)
  Receive Date: 20181017
  Receipt Date: 20181017
  Transmission Date: 20190205
  Serious: No
  Sender: FDA-Public Use
  Company Number: None

PATIENT
  Age: 42 Year

DRUGS (1)
  1. NORDITROPIN [Suspect]
     Active Substance: SOMATROPIN
     Dosage: ?          OTHER DOSE:0.5MG;?
     Route: 058
     Dates: start: 201801

REACTIONS (3)
  - Myalgia [None]
  - Respiratory tract infection [None]
  - Therapy cessation [None]

NARRATIVE: CASE EVENT DATE: 20181015
